FAERS Safety Report 4487889-5 (Version None)
Quarter: 2004Q4

REPORT INFORMATION
  Report Type: 
  Country: None (occurrence: None)
  Receive Date: 20041026
  Receipt Date: 20041008
  Transmission Date: 20050328
  Serious: Yes (Other)
  Sender: FDA-Public Use
  Company Number: USA040875191

PATIENT
  Age: 8 Year
  Sex: Female

DRUGS (1)
  1. STRATTERA [Suspect]
     Dosage: 18 MG/1 DAY
     Dates: start: 20031101, end: 20040809

REACTIONS (2)
  - FALL [None]
  - GRAND MAL CONVULSION [None]
